FAERS Safety Report 13550826 (Version 5)
Quarter: 2019Q4

REPORT INFORMATION
  Report Type: Spontaneous
  Country: DE (occurrence: DE)
  Receive Date: 20170516
  Receipt Date: 20191206
  Transmission Date: 20200122
  Serious: Yes (Other)
  Sender: FDA-Public Use
  Company Number: GXKR2017DE002723

PATIENT
  Sex: Male
  Weight: 2.3 kg

DRUGS (10)
  1. LEVETIRACETAM. [Suspect]
     Active Substance: LEVETIRACETAM
     Dosage: 1000 MG, QD (500 MG, 2X/DAY (BID))
     Route: 064
     Dates: start: 20160522, end: 20170117
  2. AMIODARONE [Concomitant]
     Active Substance: AMIODARONE
     Indication: HYPOTENSION
  3. LEVETIRACETAM. [Suspect]
     Active Substance: LEVETIRACETAM
     Indication: FOETAL EXPOSURE DURING PREGNANCY
     Dosage: 1000 MG, QD (500 MG, BID)
     Route: 064
     Dates: start: 20160508, end: 20170117
  4. AMIODARONE [Concomitant]
     Active Substance: AMIODARONE
     Indication: TACHYARRHYTHMIA
     Dosage: UNK
     Route: 065
     Dates: start: 201701
  5. PROPAFENONE. [Concomitant]
     Active Substance: PROPAFENONE
     Indication: TACHYARRHYTHMIA
     Dosage: UNK
     Route: 065
  6. ILOPROST. [Concomitant]
     Active Substance: ILOPROST
     Indication: PULMONARY HYPERTENSION
     Dosage: UNK
     Route: 065
  7. CARBAMAZEPINE. [Suspect]
     Active Substance: CARBAMAZEPINE
     Dosage: 1000 MG, QD (500 MG, 2X/DAY (BID))
     Route: 064
     Dates: start: 20160522, end: 20170117
  8. ZONEGRAN [Suspect]
     Active Substance: ZONISAMIDE
     Indication: FOETAL EXPOSURE DURING PREGNANCY
     Dosage: 200 MG, QD
     Route: 064
     Dates: start: 20160508, end: 20170117
  9. ZONEGRAN [Suspect]
     Active Substance: ZONISAMIDE
     Dosage: 200 MG, QD
     Route: 064
     Dates: start: 20160522, end: 20170117
  10. CARBAMAZEPINE. [Suspect]
     Active Substance: CARBAMAZEPINE
     Indication: FOETAL EXPOSURE DURING PREGNANCY
     Dosage: 1000 MG, QD (500 MG, BID)
     Route: 064
     Dates: start: 20160508, end: 20170117

REACTIONS (10)
  - Small for dates baby [Unknown]
  - Neonatal pneumonia [Recovered/Resolved]
  - Premature baby [Recovered/Resolved]
  - Tachyarrhythmia [Not Recovered/Not Resolved]
  - Neonatal hypotension [Recovered/Resolved]
  - Pulmonary hypertension [Recovered/Resolved]
  - Low birth weight baby [Unknown]
  - Respiratory disorder neonatal [Recovered/Resolved]
  - Maternal exposure during pregnancy [Unknown]
  - Disseminated intravascular coagulation [Recovered/Resolved]

NARRATIVE: CASE EVENT DATE: 20160522
